FAERS Safety Report 7125337-7 (Version None)
Quarter: 2010Q4

REPORT INFORMATION
  Report Type: 
  Country: None (occurrence: None)
  Receive Date: 20101129
  Receipt Date: 20101117
  Transmission Date: 20110411
  Serious: Yes (Other)
  Sender: FDA-Public Use
  Company Number: JP-SANOFI-AVENTIS-2010SA065398

PATIENT
  Age: 17 Year
  Sex: Female

DRUGS (3)
  1. MYSLEE [Suspect]
     Indication: INSOMNIA
     Route: 048
     Dates: start: 20101019, end: 20101019
  2. ZYPREXA [Concomitant]
     Indication: DEPRESSION
     Route: 048
     Dates: start: 20101005
  3. ZYPREXA [Concomitant]
     Indication: INSOMNIA
     Route: 048
     Dates: start: 20101005

REACTIONS (4)
  - ANTEROGRADE AMNESIA [None]
  - CONFUSIONAL STATE [None]
  - HYPERVENTILATION [None]
  - OFF LABEL USE [None]
